FAERS Safety Report 6785025-3 (Version None)
Quarter: 2010Q2

REPORT INFORMATION
  Report Type: 
  Country: None (occurrence: None)
  Receive Date: 20100622
  Receipt Date: 20100615
  Transmission Date: 20101027
  Serious: Yes (Hospitalization, Disabling)
  Sender: FDA-Public Use
  Company Number: DE-ABBOTT-10P-062-0643147-00

PATIENT
  Age: 44 Year
  Sex: Male

DRUGS (7)
  1. ERGENYL [Suspect]
     Indication: EPILEPSY
     Route: 048
  2. LAMOTRIGINE [Suspect]
     Indication: EPILEPSY
     Route: 048
  3. PANTOZOL [Concomitant]
     Indication: DRUG USE FOR UNKNOWN INDICATION
  4. INDOMETHACIN [Concomitant]
     Indication: DRUG USE FOR UNKNOWN INDICATION
  5. OXCARBAZEPINE [Concomitant]
     Indication: DRUG USE FOR UNKNOWN INDICATION
  6. RISPERDAL [Concomitant]
     Indication: DRUG USE FOR UNKNOWN INDICATION
  7. SPIRONOLACTONE [Concomitant]
     Indication: DRUG USE FOR UNKNOWN INDICATION

REACTIONS (9)
  - ANAEMIA [None]
  - GAIT DISTURBANCE [None]
  - IMMUNOGLOBULINS DECREASED [None]
  - INFECTION SUSCEPTIBILITY INCREASED [None]
  - LYMPHADENOPATHY [None]
  - LYMPHOPENIA [None]
  - OEDEMA [None]
  - PARANEOPLASTIC SYNDROME [None]
  - PERFORMANCE STATUS DECREASED [None]
